FAERS Safety Report 20457247 (Version 1)
Quarter: 2022Q1

REPORT INFORMATION
  Report Type: Spontaneous
  Country: US (occurrence: US)
  Receive Date: 20220210
  Receipt Date: 20220210
  Transmission Date: 20220423
  Serious: Yes (Other)
  Sender: FDA-Public Use
  Company Number: US-DSJP-DSU-2022-104645

PATIENT
  Age: 72 Year
  Sex: Female

DRUGS (1)
  1. ENHERTU [Suspect]
     Active Substance: FAM-TRASTUZUMAB DERUXTECAN-NXKI
     Indication: Breast cancer
     Dosage: UNK
     Route: 065

REACTIONS (7)
  - Interstitial lung disease [Unknown]
  - Pneumonitis [Unknown]
  - Pulmonary fibrosis [Unknown]
  - Cough [Unknown]
  - Bronchiectasis [Unknown]
  - Disease progression [Unknown]
  - Lung opacity [Unknown]
